FAERS Safety Report 9089416 (Version 1)
Quarter: 2013Q1

REPORT INFORMATION
  Report Type: Report from Study
  Country: US (occurrence: US)
  Receive Date: 20130201
  Receipt Date: 20130201
  Transmission Date: 20140127
  Serious: No
  Sender: FDA-Public Use
  Company Number: US-ABBOTT-12P-163-1019794-00

PATIENT
  Age: 28 Year
  Sex: Female

DRUGS (5)
  1. HUMIRA [Suspect]
     Indication: RHEUMATOID ARTHRITIS
     Dates: start: 20120613
  2. HUMIRA [Suspect]
     Dates: start: 20121208
  3. BENADRYL [Concomitant]
     Indication: RASH PUSTULAR
     Dosage: UNKNOWN
     Dates: start: 201212
  4. BENADRYL [Concomitant]
     Indication: RASH PUSTULAR
  5. BENADRYL [Concomitant]
     Indication: RASH PUSTULAR

REACTIONS (4)
  - Nausea [Recovering/Resolving]
  - Rash pustular [Recovering/Resolving]
  - Rash pustular [Recovering/Resolving]
  - Rash pustular [Recovering/Resolving]
